FAERS Safety Report 8484656-2 (Version None)
Quarter: 2012Q3

REPORT INFORMATION
  Report Type: 
  Country: None (occurrence: None)
  Receive Date: 20120703
  Receipt Date: 20120402
  Transmission Date: 20120928
  Serious: No
  Sender: FDA-Public Use
  Company Number: US-TEVA-331252USA

PATIENT
  Sex: Male
  Weight: 99.88 kg

DRUGS (13)
  1. OMEPRAZOLE [Concomitant]
     Indication: GASTROOESOPHAGEAL REFLUX DISEASE
     Dosage: 20 MILLIGRAM;
     Route: 048
  2. DULOXETINE HYDROCHLORIDE [Concomitant]
     Indication: DEPRESSION
     Dosage: 30 MILLIGRAM;
     Route: 048
  3. ASPIRIN [Concomitant]
     Dosage: 81 MILLIGRAM;
     Route: 048
  4. MELOXICAM [Concomitant]
     Indication: INTERVERTEBRAL DISC PROTRUSION
     Dosage: 15 MILLIGRAM;
     Route: 048
  5. GABAPENTIN [Concomitant]
     Indication: MULTIPLE SCLEROSIS
     Dosage: 600 MILLIGRAM;
     Route: 048
  6. TESTOSTERONE [Concomitant]
     Route: 030
  7. SIMVASTATIN [Concomitant]
     Indication: BLOOD CHOLESTEROL
     Dosage: 40 MILLIGRAM;
     Route: 048
  8. LEVOTHYROXINE SODIUM [Concomitant]
     Indication: THYROID DISORDER
     Dosage: 200 MICROGRAM;
     Route: 048
  9. MULTI-VITAMIN [Concomitant]
     Indication: SUPPLEMENTATION THERAPY
     Route: 048
  10. NUVIGIL [Suspect]
     Indication: FATIGUE
     Dosage: 250 MILLIGRAM;
     Route: 048
     Dates: start: 20110601, end: 20120201
  11. INTERFERON BETA NOS [Concomitant]
     Dosage: 4.2857 MILLIGRAM;
     Route: 030
  12. ZINC SULFATE [Concomitant]
     Indication: SUPPLEMENTATION THERAPY
     Dosage: 50 MILLIGRAM;
     Route: 048
  13. DULOXETINE HYDROCHLORIDE [Concomitant]
     Indication: PAIN

REACTIONS (2)
  - DRUG TOLERANCE [None]
  - DRUG INEFFECTIVE [None]
